FAERS Safety Report 14417772 (Version 1)
Quarter: 2018Q1

REPORT INFORMATION
  Report Type: Spontaneous
  Country: US (occurrence: US)
  Receive Date: 20180119
  Receipt Date: 20180119
  Transmission Date: 20180509
  Serious: Yes (Hospitalization)
  Sender: FDA-Public Use
  Company Number: None

PATIENT
  Sex: Male

DRUGS (9)
  1. ASACOL [Concomitant]
     Active Substance: MESALAMINE
  2. NOVOLOG [Concomitant]
     Active Substance: INSULIN ASPART
  3. BALSALAZIDE [Concomitant]
     Active Substance: BALSALAZIDE
  4. LEVOTHYROXIN [Concomitant]
     Active Substance: LEVOTHYROXINE
  5. LEXAPRO [Concomitant]
     Active Substance: ESCITALOPRAM OXALATE
  6. TOUJEO [Concomitant]
     Active Substance: INSULIN GLARGINE
  7. DIOVAN [Concomitant]
     Active Substance: VALSARTAN
  8. INFLECTRA [Suspect]
     Active Substance: INFLIXIMAB-DYYB
     Indication: COLITIS ULCERATIVE
     Dosage: ?          OTHER FREQUENCY:WEEKS 0, 2, + 6;?
     Route: 042
     Dates: start: 20171208
  9. MAGNESIUM [Concomitant]
     Active Substance: MAGNESIUM

REACTIONS (1)
  - Serum sickness [None]
